FAERS Safety Report 25151463 (Version 1)
Quarter: 2025Q2

REPORT INFORMATION
  Report Type: Spontaneous
  Country: US (occurrence: None)
  Receive Date: 20250402
  Receipt Date: 20250402
  Transmission Date: 20250716
  Serious: Yes (unspecified)
  Sender: FDA-CTU
  Company Number: None

PATIENT
  Age: 66 Year
  Sex: Female
  Weight: 72 kg

DRUGS (20)
  1. REPATHA [Suspect]
     Active Substance: EVOLOCUMAB
     Indication: Low density lipoprotein increased
     Route: 058
  2. LOSARTAN [Concomitant]
     Active Substance: LOSARTAN
  3. AMLODIPINE [Concomitant]
     Active Substance: AMLODIPINE BESYLATE
  4. Loritdine [Concomitant]
  5. AJOVY [Concomitant]
     Active Substance: FREMANEZUMAB-VFRM
  6. DULOXETINE [Concomitant]
     Active Substance: DULOXETINE
  7. NURTEC ODT [Concomitant]
     Active Substance: RIMEGEPANT SULFATE
  8. Fluticlsone nasal spray [Concomitant]
  9. CEQUA [Concomitant]
     Active Substance: CYCLOSPORINE
  10. Gabapintin [Concomitant]
  11. Joint collagen one daily [Concomitant]
  12. VITAMIN B COMPLEX [Concomitant]
     Active Substance: CYANOCOBALAMIN\DEXPANTHENOL\NIACINAMIDE\PYRIDOXINE HYDROCHLORIDE\RIBOFLAVIN 5^-PHOSPHATE SODIUM\THIA
  13. MAGNESIUM [Concomitant]
     Active Substance: MAGNESIUM
  14. POTASSIUM [Concomitant]
     Active Substance: POTASSIUM
  15. L Proline [Concomitant]
  16. GLUTAMINE [Concomitant]
     Active Substance: GLUTAMINE
  17. VITAMIN D [Concomitant]
     Active Substance: VITAMIN D NOS
  18. Turmericcurcumin [Concomitant]
  19. Resvertol berberine grape seed [Concomitant]
  20. QUERCETIN [Concomitant]
     Active Substance: QUERCETIN

REACTIONS (6)
  - Swelling face [None]
  - Blister [None]
  - Influenza like illness [None]
  - Secretion discharge [None]
  - Eye inflammation [None]
  - Pain [None]

NARRATIVE: CASE EVENT DATE: 20250304
